FAERS Safety Report 8574115-0 (Version None)
Quarter: 2012Q3

REPORT INFORMATION
  Report Type: 
  Country: None (occurrence: None)
  Receive Date: 20120806
  Receipt Date: 20120726
  Transmission Date: 20120928
  Serious: Yes (Death)
  Sender: FDA-Public Use
  Company Number: JP-AMGEN-JPNSP2012045313

PATIENT
  Age: 71 Year
  Sex: Male

DRUGS (3)
  1. ROMIPLATE [Suspect]
     Route: 058
     Dates: start: 20120620, end: 20120711
  2. EPOGIN INJ. 6000 [Concomitant]
     Dosage: UNCERTAINTY
     Route: 065
  3. ROMIPLATE [Suspect]
     Indication: IDIOPATHIC THROMBOCYTOPENIC PURPURA
     Dosage: 1 MUG/KG, UNK
     Route: 058
     Dates: start: 20120613

REACTIONS (1)
  - AZOTAEMIA [None]
